FAERS Safety Report 7213793-5 (Version None)
Quarter: 2011Q1

REPORT INFORMATION
  Report Type: 
  Country: None (occurrence: None)
  Receive Date: 20110106
  Receipt Date: 20101229
  Transmission Date: 20110831
  Serious: Yes (Hospitalization, Other)
  Sender: FDA-Public Use
  Company Number: US-ELI_LILLY_AND_COMPANY-US201011005287

PATIENT
  Sex: Female
  Weight: 123.36 kg

DRUGS (10)
  1. TRAMADOL HCL [Concomitant]
  2. LEVOTHYROXINE [Concomitant]
  3. HUMULIN N [Suspect]
     Indication: TYPE 2 DIABETES MELLITUS
     Dosage: 42 U, EACH MORNING
     Route: 058
     Dates: start: 20080101
  4. HUMULIN N [Suspect]
     Dosage: 32 U, EACH EVENING
     Route: 058
     Dates: start: 20080101
  5. DIOVAN [Concomitant]
  6. LASIX [Concomitant]
  7. PULMICORT [Concomitant]
  8. ZOCOR [Concomitant]
  9. XOPENEX [Concomitant]
  10. ASPIRIN [Concomitant]

REACTIONS (11)
  - SPINAL COLUMN STENOSIS [None]
  - URINARY TRACT INFECTION [None]
  - STRESS [None]
  - UROSEPSIS [None]
  - NEUROPATHY PERIPHERAL [None]
  - CHRONIC OBSTRUCTIVE PULMONARY DISEASE [None]
  - MOBILITY DECREASED [None]
  - INTERVERTEBRAL DISC PROTRUSION [None]
  - OBESITY [None]
  - MEMORY IMPAIRMENT [None]
  - OSTEOARTHRITIS [None]
